FAERS Safety Report 20762586 (Version 3)
Quarter: 2022Q4

REPORT INFORMATION
  Report Type: Spontaneous
  Country: JP (occurrence: JP)
  Receive Date: 20220428
  Receipt Date: 20221221
  Transmission Date: 20230112
  Serious: Yes (Death, Hospitalization, Other)
  Sender: FDA-Public Use
  Company Number: JP-AMGEN-JPNSP2022072577

PATIENT
  Age: 79 Year
  Sex: Female
  Weight: 36.7 kg

DRUGS (2)
  1. EVENITY [Suspect]
     Active Substance: ROMOSOZUMAB-AQQG
     Indication: Osteoporosis
     Dosage: 210 MILLIGRAM, QMO
     Route: 058
     Dates: start: 20211213, end: 20220209
  2. EVENITY [Suspect]
     Active Substance: ROMOSOZUMAB-AQQG
     Dosage: 210 MILLIGRAM, QMO
     Route: 058
     Dates: start: 20221202

REACTIONS (6)
  - Respiratory disorder [Fatal]
  - Pulmonary tuberculosis [Unknown]
  - Pneumonia aspiration [Unknown]
  - Asthma [Unknown]
  - Otitis media chronic [Unknown]
  - Sarcopenia [Unknown]

NARRATIVE: CASE EVENT DATE: 20220201
